FAERS Safety Report 9819475 (Version 3)
Quarter: 2014Q1

REPORT INFORMATION
  Report Type: Spontaneous
  Country: IL (occurrence: IL)
  Receive Date: 20140115
  Receipt Date: 20140317
  Transmission Date: 20141002
  Serious: Yes (Hospitalization, Disabling, Other)
  Sender: FDA-Public Use
  Company Number: IL-EISAI INC-E7389-04272-SPO-IL

PATIENT
  Age: 69 Year
  Sex: Female
  Weight: 48 kg

DRUGS (8)
  1. HALAVEN [Suspect]
     Indication: BREAST CANCER
     Dosage: 1.6 MG
     Route: 041
     Dates: start: 20130709, end: 20130716
  2. HALAVEN [Suspect]
     Dosage: 1.7 MG
     Route: 041
     Dates: start: 20130730, end: 20130806
  3. HALAVEN [Suspect]
     Dosage: 1.2 MG
     Route: 041
     Dates: start: 20130903, end: 20130910
  4. GEMZAR [Concomitant]
     Indication: BREAST CANCER
     Dosage: 1400 MG
     Dates: start: 20130625, end: 20130625
  5. GEMZAR [Concomitant]
     Dates: start: 20131008, end: 20131022
  6. ZOMETA [Concomitant]
     Indication: METASTASES TO BONE
     Dates: start: 20130716, end: 20130716
  7. ZOMETA [Concomitant]
     Dates: start: 20131008, end: 20131008
  8. VINORELBINE [Concomitant]
     Indication: BREAST CANCER
     Dosage: 35 MG
     Dates: end: 20130921

REACTIONS (3)
  - Optic nerve disorder [Not Recovered/Not Resolved]
  - Stomatitis [Recovered/Resolved]
  - Malignant neoplasm progression [Unknown]
